FAERS Safety Report 8429989-0 (Version None)
Quarter: 2012Q2

REPORT INFORMATION
  Report Type: 
  Country: None (occurrence: None)
  Receive Date: 20120612
  Receipt Date: 20120608
  Transmission Date: 20120825
  Serious: No
  Sender: FDA-Public Use
  Company Number: US-BAYER-2012-057895

PATIENT
  Age: 91 Year
  Sex: Female
  Weight: 60 kg

DRUGS (5)
  1. ACETAMINOPHEN [Concomitant]
  2. VITAMIN TAB [Concomitant]
  3. HORMONES NOS [Concomitant]
  4. ALEVE (CAPLET) [Suspect]
     Indication: ARTHRITIS
     Dosage: 1 TABLET
     Route: 048
     Dates: start: 20120606
  5. DIOVAN [Concomitant]

REACTIONS (1)
  - ASTHENIA [None]
